FAERS Safety Report 22651368 (Version 1)
Quarter: 2023Q2

REPORT INFORMATION
  Report Type: Spontaneous
  Country: JP (occurrence: JP)
  Receive Date: 20230628
  Receipt Date: 20230628
  Transmission Date: 20230721
  Serious: Yes (Hospitalization, Other)
  Sender: FDA-Public Use
  Company Number: JP-PFIZER INC-PV202300111212

PATIENT
  Age: 75 Year
  Sex: Male
  Weight: 166.4 kg

DRUGS (16)
  1. OXALIPLATIN [Suspect]
     Active Substance: OXALIPLATIN
     Indication: Gastric cancer
     Dosage: 110 MG X ONCE
     Dates: start: 20220311, end: 20220725
  2. AROKARIS [Concomitant]
  3. PALONOSETRON [Concomitant]
     Active Substance: PALONOSETRON
  4. ORGADRONE [Concomitant]
     Active Substance: DEXAMETHASONE SODIUM PHOSPHATE
  5. POLARAMINE [Concomitant]
     Active Substance: DEXCHLORPHENIRAMINE MALEATE
  6. FAMOTIDINE [Concomitant]
     Active Substance: FAMOTIDINE
  7. OPDIVO [Concomitant]
     Active Substance: NIVOLUMAB
  8. LEVOLEUCOVORIN CALCIUM [Concomitant]
     Active Substance: LEVOLEUCOVORIN CALCIUM
  9. FLUOROURACIL [Concomitant]
     Active Substance: FLUOROURACIL
  10. HEPARIN SODIUM [Concomitant]
     Active Substance: HEPARIN SODIUM
  11. CERNILTON [CERNITIN GBX;CERNITIN T60] [Concomitant]
  12. LAFUTIDINE [Concomitant]
     Active Substance: LAFUTIDINE
  13. OMEGA-3-ACID ETHYL ESTERS [Concomitant]
     Active Substance: OMEGA-3-ACID ETHYL ESTERS
  14. FEBUXOSTAT [Concomitant]
     Active Substance: FEBUXOSTAT
  15. MOSAPRIDE CITRATE [Concomitant]
     Active Substance: MOSAPRIDE CITRATE
  16. MAGNESIUM OXIDE [Concomitant]
     Active Substance: MAGNESIUM OXIDE

REACTIONS (3)
  - Nephropathy toxic [Recovered/Resolved]
  - Drug hypersensitivity [Recovered/Resolved]
  - Chills [Recovered/Resolved]

NARRATIVE: CASE EVENT DATE: 20220725
